FAERS Safety Report 11449966 (Version 1)
Quarter: 2015Q3

REPORT INFORMATION
  Report Type: Spontaneous
  Country: US (occurrence: US)
  Receive Date: 20150903
  Receipt Date: 20150903
  Transmission Date: 20151125
  Serious: No
  Sender: FDA-Public Use
  Company Number: US-ROCHE-1050321

PATIENT
  Age: 66 Year
  Sex: Female

DRUGS (3)
  1. RIBAVIRIN. [Suspect]
     Active Substance: RIBAVIRIN
     Indication: PRODUCT USED FOR UNKNOWN INDICATION
  2. PEGASYS [Suspect]
     Active Substance: PEGINTERFERON ALFA-2A
     Indication: HEPATITIS C
     Route: 058
     Dates: start: 20120207
  3. VICTRELIS [Suspect]
     Active Substance: BOCEPREVIR
     Indication: PRODUCT USED FOR UNKNOWN INDICATION

REACTIONS (7)
  - Dry mouth [Unknown]
  - Asthenia [Unknown]
  - Dysphagia [Unknown]
  - Nausea [Unknown]
  - Injury associated with device [Unknown]
  - Anaemia [Unknown]
  - Viral load undetectable [Unknown]

NARRATIVE: CASE EVENT DATE: 20120207
